FAERS Safety Report 8469701-2 (Version None)
Quarter: 2012Q2

REPORT INFORMATION
  Report Type: 
  Country: None (occurrence: None)
  Receive Date: 20120626
  Receipt Date: 20120622
  Transmission Date: 20120825
  Serious: No
  Sender: FDA-Public Use
  Company Number: US-PFIZER INC-2012151032

PATIENT
  Sex: Female
  Weight: 56.69 kg

DRUGS (2)
  1. RELPAX [Suspect]
     Indication: MIGRAINE
     Dosage: 20 MG, 1X/DAY
     Route: 048
     Dates: start: 20120423, end: 20120425
  2. RELPAX [Suspect]
     Indication: HEADACHE

REACTIONS (1)
  - RASH [None]
